FAERS Safety Report 23277254 (Version 1)
Quarter: 2023Q4

REPORT INFORMATION
  Report Type: Spontaneous
  Country: US (occurrence: None)
  Receive Date: 20231208
  Receipt Date: 20231208
  Transmission Date: 20240110
  Serious: Yes (Hospitalization)
  Sender: FDA-Public Use
  Company Number: None

PATIENT
  Age: 81 Year
  Sex: Male
  Weight: 82.1 kg

DRUGS (1)
  1. AVELUMAB [Suspect]
     Active Substance: AVELUMAB
     Dates: end: 20231103

REACTIONS (3)
  - Transitional cell carcinoma [None]
  - Metastasis [None]
  - Gait disturbance [None]

NARRATIVE: CASE EVENT DATE: 20231116
